FAERS Safety Report 8322283-8 (Version None)
Quarter: 2012Q2

REPORT INFORMATION
  Report Type: 
  Country: None (occurrence: None)
  Receive Date: 20120430
  Receipt Date: 20120420
  Transmission Date: 20120825
  Serious: Yes (Death, Hospitalization)
  Sender: FDA-Public Use
  Company Number: JP-AMGEN-JPNCT2012017931

PATIENT
  Age: 64 Year
  Sex: Male
  Weight: 76 kg

DRUGS (14)
  1. PANITUMUMAB [Suspect]
     Dosage: UNK, Q2WK
     Route: 041
     Dates: start: 20111216, end: 20120203
  2. FLUOROURACIL [Concomitant]
     Route: 041
     Dates: start: 20101224, end: 20110210
  3. FLUOROURACIL [Concomitant]
     Route: 013
     Dates: start: 20111216, end: 20120210
  4. LEUCOVORIN CALCIUM [Concomitant]
     Indication: COLORECTAL CANCER
     Route: 041
     Dates: start: 20101224, end: 20110210
  5. PANITUMUMAB [Suspect]
     Dosage: UNK, Q2WK
     Route: 041
     Dates: start: 20110701, end: 20111201
  6. FLUOROURACIL [Concomitant]
     Route: 040
     Dates: start: 20110701, end: 20111201
  7. PANITUMUMAB [Suspect]
     Indication: COLORECTAL CANCER METASTATIC
     Dosage: UNK UNK, Q2WK
     Route: 041
     Dates: start: 20101224, end: 20110210
  8. LEUCOVORIN CALCIUM [Concomitant]
     Route: 041
     Dates: start: 20110701, end: 20111201
  9. LEUCOVORIN CALCIUM [Concomitant]
     Route: 041
     Dates: start: 20111216, end: 20120210
  10. IRINOTECAN HCL [Concomitant]
     Indication: COLORECTAL CANCER
     Route: 041
     Dates: start: 20101224, end: 20110210
  11. IRINOTECAN HCL [Concomitant]
     Route: 041
     Dates: start: 20111216, end: 20120203
  12. FLUOROURACIL [Concomitant]
     Indication: COLORECTAL CANCER
     Route: 040
     Dates: start: 20101224, end: 20110210
  13. IRINOTECAN HCL [Concomitant]
     Route: 041
     Dates: start: 20110701, end: 20111201
  14. FLUOROURACIL [Concomitant]
     Route: 041
     Dates: start: 20110701, end: 20111201

REACTIONS (2)
  - NECROTISING FASCIITIS [None]
  - SKIN DISORDER [None]
